FAERS Safety Report 10037281 (Version 1)
Quarter: 2014Q1

REPORT INFORMATION
  Report Type: Spontaneous
  Country: GB (occurrence: None)
  Receive Date: 20140324
  Receipt Date: 20140324
  Transmission Date: 20141002
  Serious: Yes (Death)
  Sender: FDA-Public Use
  Company Number: AUR-APL-2014-03286

PATIENT
  Age: 32 Year
  Sex: Male
  Weight: 82.8 kg

DRUGS (4)
  1. MIRTAZAPINE (MIRTAZAPINE) [Suspect]
     Indication: PRODUCT USED FOR UNKNOWN INDICATION
  2. DIAMORPHINE (DIAMORPHINE) [Suspect]
     Indication: PRODUCT USED FOR UNKNOWN INDICATION
  3. DIAZEPAM (DIAZEPAM) [Suspect]
     Indication: PRODUCT USED FOR UNKNOWN INDICATION
  4. ZAPONEX (CLOZAPINE) [Suspect]
     Indication: SCHIZOPHRENIA
     Route: 048
     Dates: start: 20130905, end: 20131001

REACTIONS (21)
  - Hepatic steatosis [None]
  - Intentional drug misuse [None]
  - White blood cell count increased [None]
  - Drug interaction [None]
  - Antipsychotic drug level increased [None]
  - Bronchoalveolar lavage abnormal [None]
  - Pancreatic disorder [None]
  - Toxicity to various agents [None]
  - Scar [None]
  - Excoriation [None]
  - Pulmonary oedema [None]
  - Pulmonary congestion [None]
  - Coronary artery stenosis [None]
  - Hepatomegaly [None]
  - Loss of consciousness [None]
  - Cardio-respiratory arrest [None]
  - Respiratory depression [None]
  - Liver injury [None]
  - Fibrosis [None]
  - Blood alcohol increased [None]
  - Toxicity to various agents [None]
